FAERS Safety Report 21451269 (Version 1)
Quarter: 2022Q4

REPORT INFORMATION
  Report Type: Spontaneous
  Country: US (occurrence: US)
  Receive Date: 20221013
  Receipt Date: 20221013
  Transmission Date: 20230112
  Serious: Yes (Other)
  Sender: FDA-Public Use
  Company Number: US-Indivior Limited-INDV-133017-2022

PATIENT
  Age: 29 Year
  Sex: Male

DRUGS (1)
  1. SUBLOCADE [Suspect]
     Active Substance: BUPRENORPHINE
     Indication: Product used for unknown indication
     Dosage: 100 MILLIGRAM, QMO (LEFT UPPER QUADRANT)
     Route: 058
     Dates: start: 20220214

REACTIONS (2)
  - Injection site necrosis [Unknown]
  - Drug delivery system removal [Recovered/Resolved]

NARRATIVE: CASE EVENT DATE: 20220214
